FAERS Safety Report 8092353-0 (Version None)
Quarter: 2012Q1

REPORT INFORMATION
  Report Type: 
  Country: None (occurrence: None)
  Receive Date: 20120128
  Receipt Date: 20110824
  Transmission Date: 20120608
  Serious: No
  Sender: FDA-Public Use
  Company Number: US-ABBOTT-11P-163-0849156-00

PATIENT
  Age: 49 Year
  Sex: Male

DRUGS (5)
  1. CLOTRIMAZOLE [Concomitant]
     Indication: FUNGAL SKIN INFECTION
     Dosage: TWICE DAILY TO GROIN
     Route: 061
  2. HUMIRA [Suspect]
     Indication: PSORIATIC ARTHROPATHY
     Dates: start: 20110516
  3. FLUOCINONIDE [Concomitant]
     Indication: PSORIASIS
  4. GABAPENTIN [Concomitant]
     Indication: NEURALGIA
  5. CALCIUM +D [Concomitant]
     Indication: PRODUCT USED FOR UNKNOWN INDICATION

REACTIONS (2)
  - DYSPEPSIA [None]
  - HEPATIC ENZYME INCREASED [None]
